FAERS Safety Report 7497803-6 (Version None)
Quarter: 2011Q2

REPORT INFORMATION
  Report Type: 
  Country: None (occurrence: None)
  Receive Date: 20110524
  Receipt Date: 20110518
  Transmission Date: 20111010
  Serious: Yes (Life-Threatening, Hospitalization, Other)
  Sender: FDA-Public Use
  Company Number: KR-BAYER-2011-043190

PATIENT
  Age: 40 Year
  Sex: Female

DRUGS (3)
  1. NIMODIPINE [Suspect]
     Indication: CEREBROVASCULAR SPASM
     Dosage: 2 MG, UNK, 2-4 ML PER MINUTE
     Route: 013
  2. NIMODIPINE [Suspect]
     Dosage: 2 MG,
     Route: 013
  3. NIMODIPINE [Suspect]
     Dosage: 3 MG, UNK

REACTIONS (3)
  - HEMIPARESIS [None]
  - SOMNOLENCE [None]
  - VASOGENIC CEREBRAL OEDEMA [None]
